FAERS Safety Report 7541326-2 (Version None)
Quarter: 2011Q2

REPORT INFORMATION
  Report Type: 
  Country: None (occurrence: None)
  Receive Date: 20110612
  Receipt Date: 20110607
  Transmission Date: 20111010
  Serious: No
  Sender: FDA-Public Use
  Company Number: US-ROXANE LABORATORIES, INC.-2011-RO-00800RO

PATIENT
  Age: 58 Year
  Sex: Female

DRUGS (2)
  1. PROTRIPTYLINE HCL [Suspect]
     Indication: DEPRESSION
     Dosage: 5 MG
     Route: 048
     Dates: start: 20110201
  2. XANAX [Concomitant]
     Indication: ANXIETY
     Route: 048

REACTIONS (3)
  - FEELING HOT [None]
  - AGITATION [None]
  - FLUSHING [None]
